FAERS Safety Report 20889420 (Version 2)
Quarter: 2022Q2

REPORT INFORMATION
  Report Type: Spontaneous
  Country: GB (occurrence: GB)
  Receive Date: 20220530
  Receipt Date: 20220602
  Transmission Date: 20220721
  Serious: Yes (Other)
  Sender: FDA-Public Use
  Company Number: GB-MHRA-MED-202205200820595030-HQO14

PATIENT

DRUGS (26)
  1. PREDNISOLONE [Suspect]
     Active Substance: PREDNISOLONE
     Indication: Chronic obstructive pulmonary disease
     Dosage: 30 MG, QD (TAKE 30MG ONCE DAILY IN THE MORNING FOR FIVE DAYS) TABLET
     Route: 048
     Dates: start: 20210813, end: 20210814
  2. FLUTICASONE PROPIONATE [Concomitant]
     Active Substance: FLUTICASONE PROPIONATE
     Indication: Rhinitis
     Dosage: UNK
  3. GAVISCON [Concomitant]
     Active Substance: ALUMINUM HYDROXIDE\MAGNESIUM CARBONATE
     Indication: Dyspepsia
     Dosage: UNK, QID (TAKE 1 UP TO FOUR TIMES A DAY, AS NEEDED)
     Dates: start: 20220425, end: 20220516
  4. OMEPRAZOLE [Concomitant]
     Active Substance: OMEPRAZOLE
     Indication: Dyspepsia
     Dosage: 1 DOSAGE FORM, BID (TAKE ONE TWICE DAILY TO REDUCE STOMACH ACID)
     Dates: start: 20210406
  5. SOPROBEC [Concomitant]
     Indication: Chronic obstructive pulmonary disease
     Dosage: 1 DOSAGE FORM, BID (INHALE 1 DOSE TWICE DAILY)
     Dates: start: 20210706
  6. ADCAL [Concomitant]
     Dosage: 2 DOSAGE FORM, BID, TAKE TWO TWICE DAILY
     Dates: start: 20220411
  7. ATORVASTATIN [Concomitant]
     Active Substance: ATORVASTATIN
     Indication: Blood cholesterol
     Dosage: 1 DOSAGE FORM, QD,TAKE ONE TABLET AT NIGHT FOR CHOLESTEROL
     Dates: start: 20200401
  8. CETRABEN EMOLLIENT CREAM [Concomitant]
     Indication: Dry skin
     Dosage: UNK, PRN,USE AS NEEDED FOR DRY ITCHY SKIN
     Dates: start: 20200914
  9. CETRABEN EMOLLIENT CREAM [Concomitant]
     Indication: Pruritus
  10. CHOLECALCIFEROL [Concomitant]
     Active Substance: CHOLECALCIFEROL
     Dosage: 1 DOSAGE FORM, QD (1 DAILY, LOW VITAMIN DAY(S))
     Dates: start: 20210607, end: 20220411
  11. DOXYCYCLINE [Concomitant]
     Active Substance: DOXYCYCLINE
     Dosage: 2 DOSAGE FORM QD(TWO NOW THEN ONE DAILY)
     Dates: start: 20220412, end: 20220419
  12. FLUTICASONE PROPIONATE [Concomitant]
     Active Substance: FLUTICASONE PROPIONATE
     Dosage: 2 DOSAGE FORM, QD (TWO PUFFS ONCE DAILY)
     Dates: start: 20210617
  13. FYBOGEL [Concomitant]
     Active Substance: HERBALS\PLANTAGO OVATA SEED
     Dosage: 1 DOSAGE FORM, BID (ONE TWICE A DAY)
     Dates: start: 20220329
  14. INVITA-D3 [Concomitant]
     Dosage: ADULTS ONLY TREATMENT:TAKE ONE CAPSULE PER WEEK...
     Dates: start: 20220428
  15. ISPAGHULA EXTRACT\PSYLLIUM [Concomitant]
     Active Substance: HERBALS\PLANTAGO OVATA SEED\PLANTAGO SEED
     Dosage: UNK, BID (TAKE THE CONTENTS OF ONE SACHET TWICE A DAY AS)
     Dates: start: 20220315, end: 20220414
  16. KETOCONAZOLE [Concomitant]
     Active Substance: KETOCONAZOLE
     Dosage: 1 DOSAGE FORM, BID (APPLY TWICE DAILY TO GROIN FOR 10DAYS)
     Dates: start: 20211129
  17. LOPERAMIDE [Concomitant]
     Active Substance: LOPERAMIDE
     Indication: Diarrhoea
     Dosage: UNK (TAKE ONE AFTER EACH LOOSE STOOL , MAXIMUM 4 A DAY, FOR DIARRHOEA)
     Dates: start: 20220329
  18. LORATADINE [Concomitant]
     Active Substance: LORATADINE
     Indication: Pruritus
     Dosage: 1 DOSAGE FORM, QD (TAKE ONE DAILY WHEN REQUIRED FOR ITCH)
     Dates: start: 20201126
  19. MAALOX ANTACID [Concomitant]
     Active Substance: ALUMINUM HYDROXIDE\DIMETHICONE\MAGNESIUM HYDROXIDE
     Dosage: 5 ML, PRN (1X5ML SPOON AS NEEDED)
     Dates: start: 20220510
  20. METRONIDAZOLE [Concomitant]
     Active Substance: METRONIDAZOLE
     Dosage: 1 DOSAGE FORM, TID (TAKE ONE 3 TIMES/DAY)
     Dates: start: 20220420, end: 20220427
  21. MICONAZOLE [Concomitant]
     Active Substance: MICONAZOLE
     Dosage: 1 DOSAGE FORM, BID (APPLY TWICE DAILY TO AFFECTED AREAS)
     Dates: start: 20220511
  22. OTOMIZE [Concomitant]
     Dosage: 1 DOSAGE FORM, TID (APPLY ONE SPRAY THREE TIMES A DAY)
     Dates: start: 20220509
  23. ACETAMINOPHEN [Concomitant]
     Active Substance: ACETAMINOPHEN
     Dosage: ONE TO TWO TABLETS TO BE TAKEN EVERY FOUR TO SI...
     Dates: start: 20200512
  24. PROCHLORPERAZINE [Concomitant]
     Active Substance: PROCHLORPERAZINE
     Indication: Nausea
     Dosage: 1 DOSAGE FORM, QD (TAKE ONE THREE TIMES DAILY AS NEEDED FOR NAUSEA)
     Dates: start: 20220313, end: 20220322
  25. ALBUTEROL [Concomitant]
     Active Substance: ALBUTEROL
     Dosage: 2 DOSAGE FORM, PRN (INHALE 2 DOSES AS NEEDED (RELIEVER))
     Dates: start: 20210607
  26. SODIUM BICARBONATE [Concomitant]
     Active Substance: SODIUM BICARBONATE
     Dosage: UNK, BID (TWO OR THREE DROPS TWICE ADAY IN AFFECTED EAR F...)
     Dates: start: 20220329, end: 20220330

REACTIONS (2)
  - Hallucination, auditory [Recovered/Resolved]
  - Paranoia [Recovered/Resolved]

NARRATIVE: CASE EVENT DATE: 20210813
